FAERS Safety Report 4340585-7 (Version None)
Quarter: 2004Q2

REPORT INFORMATION
  Report Type: 
  Country: None (occurrence: None)
  Receive Date: 20040414
  Receipt Date: 20040409
  Transmission Date: 20050107
  Serious: Yes (Hospitalization)
  Sender: FDA-Public Use
  Company Number: J081-002-001627

PATIENT
  Age: 75 Year
  Sex: Male

DRUGS (5)
  1. ARICEPT [Suspect]
     Indication: DEMENTIA ALZHEIMER'S TYPE
     Dosage: 3 MG, 1 IN 1 D, ORAL
     Route: 048
     Dates: start: 20030604, end: 20030612
  2. ARICEPT [Suspect]
     Indication: DEMENTIA ALZHEIMER'S TYPE
     Dosage: 3 MG, 1 IN 1 D, ORAL
     Route: 048
     Dates: start: 20030613, end: 20040403
  3. AMAZOLON (AMANTADINE HYDROCHLORIDE) [Concomitant]
  4. ASPIRIN [Concomitant]
  5. MUCOSTA (REBAMIPIDE) [Concomitant]

REACTIONS (5)
  - COMA [None]
  - EXTRAPYRAMIDAL DISORDER [None]
  - LOSS OF CONSCIOUSNESS [None]
  - MOBILITY DECREASED [None]
  - WHITE BLOOD CELL COUNT INCREASED [None]
